FAERS Safety Report 6370718-2 (Version None)
Quarter: 2009Q3

REPORT INFORMATION
  Report Type: 
  Country: None (occurrence: None)
  Receive Date: 20090923
  Receipt Date: 20070926
  Transmission Date: 20100115
  Serious: Yes (Other)
  Sender: FDA-Public Use
  Company Number: US-ASTRAZENECA-2006UW25647

PATIENT
  Age: 58 Year
  Sex: Female
  Weight: 87.1 kg

DRUGS (21)
  1. SEROQUEL [Suspect]
     Indication: SLEEP DISORDER
     Dosage: 25-600 MG
     Route: 048
     Dates: start: 20020508
  2. SEROQUEL [Suspect]
     Dosage: 500 MG
     Route: 048
  3. SEROQUEL [Suspect]
     Dosage: 300 MG
     Route: 048
  4. RISPERDAL [Concomitant]
  5. ZYPREXA [Concomitant]
  6. HYDROXYZINE [Concomitant]
     Dosage: 25 MG
  7. PROZAC [Concomitant]
     Dosage: 40 MG
  8. PROZAC [Concomitant]
     Dosage: 20 MG,QD
     Route: 048
     Dates: start: 20011208
  9. PERPHENAZINE [Concomitant]
     Dosage: 4 MG
  10. TRAZODONE [Concomitant]
     Dosage: 200 MG
  11. SOMA [Concomitant]
     Dates: start: 20040413
  12. NORVASC [Concomitant]
     Route: 048
     Dates: start: 20021029
  13. ZOLOFT [Concomitant]
     Dates: start: 20030902
  14. ALLOPURINOL [Concomitant]
     Dates: start: 20030902
  15. LORAZEPAM [Concomitant]
     Dates: start: 20030902
  16. REMERON [Concomitant]
     Dates: start: 20020508
  17. VALIUM [Concomitant]
     Dates: start: 20020508
  18. SINEQUAN [Concomitant]
     Dosage: 200-250 MG
     Dates: start: 20020508
  19. NEXIUM [Concomitant]
     Route: 048
     Dates: start: 20021029
  20. AMBIEN [Concomitant]
     Route: 048
     Dates: start: 20021029
  21. RESTORIL [Concomitant]
     Dosage: 30 MG, 1 HS PRN
     Dates: start: 20021029

REACTIONS (1)
  - PANCREATITIS [None]
